FAERS Safety Report 18496680 (Version 1)
Quarter: 2020Q4

REPORT INFORMATION
  Report Type: Spontaneous
  Country: US (occurrence: US)
  Receive Date: 20201112
  Receipt Date: 20201112
  Transmission Date: 20210114
  Serious: Yes (Disabling)
  Sender: FDA-Public Use
  Company Number: None

PATIENT
  Age: 32 Year
  Sex: Female

DRUGS (1)
  1. BUPROPION ER HCL [Suspect]
     Active Substance: BUPROPION HYDROCHLORIDE
     Indication: DEPRESSION
     Dosage: ?          QUANTITY:1 TABLET(S);?
     Route: 048
     Dates: start: 20201102, end: 20201104

REACTIONS (4)
  - Dyspnoea [None]
  - Wheezing [None]
  - Obstructive airways disorder [None]
  - Anaphylactic reaction [None]

NARRATIVE: CASE EVENT DATE: 20201102
